FAERS Safety Report 7085467-5 (Version None)
Quarter: 2010Q4

REPORT INFORMATION
  Report Type: 
  Country: None (occurrence: None)
  Receive Date: 20101005
  Receipt Date: 20100330
  Transmission Date: 20110411
  Serious: Yes (Hospitalization, Other)
  Sender: FDA-Public Use
  Company Number: US-WYE-H14374310

PATIENT
  Age: 67 Year
  Sex: Female
  Weight: 56.9 kg

DRUGS (17)
  1. RAPAMUNE [Suspect]
     Indication: PROPHYLAXIS AGAINST TRANSPLANT REJECTION
     Dosage: 2 MG 1X PER 1 DAY
  2. AMANTADINE HCL [Concomitant]
  3. AMLODIPINE [Concomitant]
  4. ATENOLOL [Concomitant]
  5. CALCITRIOL [Concomitant]
  6. CALCIUM (CALCIUM) [Concomitant]
  7. LASIX [Concomitant]
  8. IRON (IRON) [Concomitant]
  9. ATIVAN [Concomitant]
  10. MULTIVITAMINS, PLAIN (MULTIVITAMINS, PLAIN) [Concomitant]
  11. OXYBUTYNIN CHLORIDE [Concomitant]
  12. PAXIL [Concomitant]
  13. POTASSIUM (POTASSIUM) [Concomitant]
  14. PREDNISONE TAB [Concomitant]
  15. PROGRAF [Concomitant]
  16. VITAMIN B (VITAMIN B) [Concomitant]
  17. COUMADIN [Concomitant]

REACTIONS (3)
  - EATING DISORDER [None]
  - INFECTION [None]
  - SQUAMOUS CELL CARCINOMA [None]
